FAERS Safety Report 18494161 (Version 1)
Quarter: 2020Q4

REPORT INFORMATION
  Report Type: Spontaneous
  Country: FR (occurrence: FR)
  Receive Date: 20201112
  Receipt Date: 20201112
  Transmission Date: 20210114
  Serious: Yes (Hospitalization)
  Sender: FDA-Public Use
  Company Number: FR-SA-2020SA316756

PATIENT

DRUGS (2)
  1. RIFATER [Suspect]
     Active Substance: ISONIAZID\PYRAZINAMIDE\RIFAMPIN
     Indication: LYMPH NODE TUBERCULOSIS
     Dosage: 5 DF, QD
     Route: 048
     Dates: start: 20200926, end: 20201015
  2. DEXAMBUTOL [Suspect]
     Active Substance: ETHAMBUTOL HYDROCHLORIDE
     Indication: LYMPH NODE TUBERCULOSIS
     Dosage: 2 DF, QD
     Route: 048
     Dates: start: 20200926, end: 20201015

REACTIONS (3)
  - Skin lesion [Recovered/Resolved]
  - Pruritus [Recovered/Resolved]
  - Hyperuricosuria [Unknown]

NARRATIVE: CASE EVENT DATE: 202010
